FAERS Safety Report 5404965-0 (Version None)
Quarter: 2007Q3

REPORT INFORMATION
  Report Type: 
  Country: None (occurrence: None)
  Receive Date: 20070801
  Receipt Date: 20070717
  Transmission Date: 20080115
  Serious: Yes (Hospitalization)
  Sender: FDA-Public Use
  Company Number: 016501

PATIENT
  Age: 7 Year
  Sex: Female

DRUGS (3)
  1. METHOTREXATE [Suspect]
     Indication: JUVENILE ARTHRITIS
     Dosage: 12.5 MG, WEEKLY (11.5MG/M2/WEEK), ORAL, 15 MG WEEKLY, ORAL
     Route: 048
  2. NAPROXEN SODIUM [Concomitant]
  3. PREDNISONE TAB [Concomitant]

REACTIONS (9)
  - ALANINE AMINOTRANSFERASE INCREASED [None]
  - COUGH [None]
  - CRYPTOCOCCOSIS [None]
  - HAEMOGLOBIN DECREASED [None]
  - HISTOPLASMOSIS DISSEMINATED [None]
  - LYMPHADENOPATHY MEDIASTINAL [None]
  - PHARYNGOLARYNGEAL PAIN [None]
  - SPLENOMEGALY [None]
  - WEIGHT DECREASED [None]
